FAERS Safety Report 6903389-4 (Version None)
Quarter: 2010Q3

REPORT INFORMATION
  Report Type: 
  Country: None (occurrence: None)
  Receive Date: 20100803
  Receipt Date: 20080926
  Transmission Date: 20110219
  Serious: No
  Sender: FDA-Public Use
  Company Number: US-PFIZER INC-2008082044

PATIENT
  Age: 80 Year
  Sex: Female
  Weight: 65.77 kg

DRUGS (7)
  1. LYRICA [Suspect]
     Indication: NERVE COMPRESSION
  2. TOPAMAX [Suspect]
     Dates: start: 20080101, end: 20080101
  3. SYNTHROID [Concomitant]
  4. METOPROLOL [Concomitant]
  5. VITAMIN TAB [Concomitant]
  6. ACETYLSALICYLIC ACID SRT [Concomitant]
  7. ALPHA LIPOIC ACID [Concomitant]

REACTIONS (4)
  - DECREASED APPETITE [None]
  - DRUG INEFFECTIVE [None]
  - FEELING ABNORMAL [None]
  - WEIGHT INCREASED [None]
